FAERS Safety Report 8612586-1 (Version None)
Quarter: 2012Q3

REPORT INFORMATION
  Report Type: 
  Country: None (occurrence: None)
  Receive Date: 20120822
  Receipt Date: 20111018
  Transmission Date: 20120928
  Serious: No
  Sender: FDA-Public Use
  Company Number: US-ASTRAZENECA-2011SE62595

PATIENT
  Age: 47 Year
  Sex: Female
  Weight: 65.8 kg

DRUGS (3)
  1. SYMBICORT [Suspect]
     Indication: ASTHMA
     Dosage: TWO PUFFS, FOUR TIMES IN A DAY
     Route: 055
  2. FLUTICASONE PROPIONATE/SALMETEROL [Concomitant]
     Dosage: TWO PUFFS TWO TIMES A DAY
  3. SINGULAIR [Concomitant]

REACTIONS (3)
  - DRUG DOSE OMISSION [None]
  - DYSPNOEA [None]
  - WHEEZING [None]
